FAERS Safety Report 5089647-X (Version None)
Quarter: 2006Q3

REPORT INFORMATION
  Report Type: 
  Country: None (occurrence: None)
  Receive Date: 20060822
  Receipt Date: 20060807
  Transmission Date: 20061208
  Serious: Yes (Hospitalization)
  Sender: FDA-Public Use
  Company Number: US200608001475

PATIENT
  Sex: Female

DRUGS (4)
  1. FORTEO [Suspect]
     Indication: OSTEOPOROSIS
     Dosage: SEE IMAGE
     Dates: start: 20041001, end: 20060701
  2. FORTEO [Suspect]
     Indication: OSTEOPOROSIS
     Dosage: SEE IMAGE
     Dates: start: 20060807
  3. FORTEO PEN (FORTEO PEN) PEN, DISPOSABLE [Concomitant]
  4. CEFEPIME (CEFEPIME) [Concomitant]

REACTIONS (7)
  - FALL [None]
  - FRACTURED COCCYX [None]
  - INJECTION SITE ERYTHEMA [None]
  - PHARMACEUTICAL PRODUCT COMPLAINT [None]
  - PNEUMONIA ASPIRATION [None]
  - UNEVALUABLE EVENT [None]
  - VOMITING [None]
